FAERS Safety Report 5155616-4 (Version None)
Quarter: 2006Q4

REPORT INFORMATION
  Report Type: 
  Country: None (occurrence: None)
  Receive Date: 20061114
  Receipt Date: 20061030
  Transmission Date: 20070319
  Serious: Yes (Hospitalization)
  Sender: FDA-Public Use
  Company Number: 2006129202

PATIENT
  Age: 64 Year
  Sex: Male
  Weight: 59.6 kg

DRUGS (8)
  1. SUTENT [Suspect]
     Indication: RENAL CELL CARCINOMA STAGE UNSPECIFIED
     Dosage: 50 MG (50 MG, 1 IN 1 D), ORAL
     Route: 048
     Dates: start: 20051230
  2. OXYCODONE HCL [Concomitant]
  3. OXYCODONE HCL [Concomitant]
  4. SIMVASTATIN [Concomitant]
  5. DOCUSATE (DOCUSATE) [Concomitant]
  6. MAGNESIUM OXIDE (MAGNESIUM OXIDE) [Concomitant]
  7. MILK OF MAGNESIA (MAGNESIUM OXIDE) [Concomitant]
  8. LACTULOSE [Concomitant]

REACTIONS (13)
  - ANAEMIA [None]
  - ATELECTASIS [None]
  - BLOOD MAGNESIUM DECREASED [None]
  - CONSTIPATION [None]
  - DRUG HYPERSENSITIVITY [None]
  - ENTEROBACTER BACTERAEMIA [None]
  - MALAISE [None]
  - MUSCULOSKELETAL PAIN [None]
  - NAUSEA [None]
  - PAIN [None]
  - RENAL FAILURE CHRONIC [None]
  - SEPSIS [None]
  - THROMBOCYTOPENIA [None]
